FAERS Safety Report 6512466-1 (Version None)
Quarter: 2009Q4

REPORT INFORMATION
  Report Type: 
  Country: None (occurrence: None)
  Receive Date: 20091222
  Receipt Date: 20091214
  Transmission Date: 20100525
  Serious: Yes (Death, Hospitalization, Disabling, Other)
  Sender: FDA-Public Use
  Company Number: US-BAXTER-2009BH019311

PATIENT
  Age: 69 Year
  Sex: Male

DRUGS (6)
  1. DIANEAL [Suspect]
     Indication: PERITONEAL DIALYSIS
     Route: 033
     Dates: end: 20090301
  2. DIANEAL [Suspect]
     Route: 033
     Dates: end: 20090301
  3. DIANEAL [Suspect]
     Indication: PERITONEAL DIALYSIS
     Route: 033
     Dates: end: 20090301
  4. DIANEAL [Suspect]
     Route: 033
     Dates: end: 20090301
  5. EXTRANEAL [Suspect]
     Indication: PERITONEAL DIALYSIS
     Route: 033
     Dates: end: 20090301
  6. EXTRANEAL [Suspect]
     Route: 033
     Dates: end: 20090301

REACTIONS (3)
  - DEATH [None]
  - DECUBITUS ULCER [None]
  - POST PROCEDURAL COMPLICATION [None]
